FAERS Safety Report 8078324-9 (Version None)
Quarter: 2012Q1

REPORT INFORMATION
  Report Type: 
  Country: None (occurrence: None)
  Receive Date: 20120127
  Receipt Date: 20110308
  Transmission Date: 20120608
  Serious: No
  Sender: FDA-Public Use
  Company Number: US-ABBOTT-10P-163-0617653-00

PATIENT
  Sex: Female
  Weight: 63.56 kg

DRUGS (2)
  1. HUMIRA [Suspect]
     Indication: RHEUMATOID ARTHRITIS
     Dates: start: 20091212
  2. HUMIRA [Suspect]
     Dates: start: 20091123, end: 20091201

REACTIONS (8)
  - HEADACHE [None]
  - PAIN [None]
  - FATIGUE [None]
  - HYPOAESTHESIA [None]
  - NAUSEA [None]
  - SINUSITIS [None]
  - CHEST DISCOMFORT [None]
  - CHILLS [None]
